FAERS Safety Report 4406238-1 (Version None)
Quarter: 2004Q3

REPORT INFORMATION
  Report Type: 
  Country: None (occurrence: None)
  Receive Date: 20040723
  Receipt Date: 20021113
  Transmission Date: 20050211
  Serious: No
  Sender: FDA-Public Use
  Company Number: US-GLAXOSMITHKLINE-A0386545A

PATIENT
  Age: 61 Year
  Sex: Female

DRUGS (6)
  1. AVANDIA [Suspect]
     Dosage: 4MG PER DAY
     Route: 048
     Dates: start: 20020101
  2. DIOVAN [Concomitant]
  3. METOPROLOL [Concomitant]
  4. GLYBURIDE [Concomitant]
  5. ALBUTEROL [Concomitant]
     Indication: ASTHMA
  6. TIAZAC [Concomitant]
     Dates: start: 20030601

REACTIONS (4)
  - ASTHMA [None]
  - BLOOD GLUCOSE INCREASED [None]
  - DRUG INEFFECTIVE [None]
  - WHEEZING [None]
